FAERS Safety Report 12490089 (Version 2)
Quarter: 2016Q2

REPORT INFORMATION
  Report Type: Spontaneous
  Country: TR (occurrence: TR)
  Receive Date: 20160622
  Receipt Date: 20160622
  Transmission Date: 20160815
  Serious: Yes (Life-Threatening, Hospitalization, Other)
  Sender: FDA-Public Use
  Company Number: TR-CONCORDIA PHARMACEUTICALS INC.-CO-PL-TR-2016-288

PATIENT
  Age: 71 Year
  Sex: Female

DRUGS (4)
  1. MESSINA COMBI [Concomitant]
     Indication: ASTHMA
  2. DOXIUM [Concomitant]
  3. PLAQUENIL [Suspect]
     Active Substance: HYDROXYCHLOROQUINE SULFATE
     Indication: RHEUMATOID ARTHRITIS
     Route: 048
     Dates: start: 20160413, end: 20160415
  4. BELOC [Concomitant]
     Active Substance: METOPROLOL TARTRATE

REACTIONS (10)
  - Cerebrovascular accident [Not Recovered/Not Resolved]
  - Hallucination [Not Recovered/Not Resolved]
  - Blindness [Not Recovered/Not Resolved]
  - Cognitive disorder [Not Recovered/Not Resolved]
  - Anger [Not Recovered/Not Resolved]
  - Abdominal pain upper [Not Recovered/Not Resolved]
  - Brain oedema [Not Recovered/Not Resolved]
  - Toxicity to various agents [None]
  - Vomiting [Not Recovered/Not Resolved]
  - Diarrhoea [Not Recovered/Not Resolved]

NARRATIVE: CASE EVENT DATE: 20160413
